FAERS Safety Report 11568802 (Version 1)
Quarter: 2015Q3

REPORT INFORMATION
  Report Type: Spontaneous
  Country: US (occurrence: None)
  Receive Date: 20150928
  Receipt Date: 20150928
  Transmission Date: 20151125
  Serious: Yes (Death)
  Sender: FDA-Public Use
  Company Number: None

PATIENT
  Age: 66 Year
  Sex: Male

DRUGS (3)
  1. GLEEVEC [Suspect]
     Active Substance: IMATINIB MESYLATE
     Indication: HEADACHE
     Route: 048
     Dates: start: 20150319, end: 20150822
  2. GLEEVEC [Suspect]
     Active Substance: IMATINIB MESYLATE
     Indication: LOCAL SWELLING
     Route: 048
     Dates: start: 20150319, end: 20150822
  3. GLEEVEC [Suspect]
     Active Substance: IMATINIB MESYLATE
     Indication: FACE OEDEMA
     Route: 048
     Dates: start: 20150319, end: 20150822

REACTIONS (1)
  - Death [None]

NARRATIVE: CASE EVENT DATE: 20150922
